FAERS Safety Report 7875878-X (Version None)
Quarter: 2011Q4

REPORT INFORMATION
  Report Type: 
  Country: None (occurrence: None)
  Receive Date: 20111031
  Receipt Date: 20111021
  Transmission Date: 20120403
  Serious: Yes (Hospitalization, Other)
  Sender: FDA-Public Use
  Company Number: DE-ABBOTT-11P-062-0866919-00

PATIENT
  Age: 41 Year
  Sex: Female
  Weight: 46 kg

DRUGS (8)
  1. SOLOFALK [Concomitant]
     Indication: PRODUCT USED FOR UNKNOWN INDICATION
     Dates: start: 20110101
  2. SYSTEMIC STEROIDS [Concomitant]
     Indication: PRODUCT USED FOR UNKNOWN INDICATION
     Dosage: 60 MG
  3. PROGRAF [Concomitant]
     Indication: PRODUCT USED FOR UNKNOWN INDICATION
     Dates: start: 20110501
  4. HUMIRA [Suspect]
     Indication: CROHN'S DISEASE
     Dosage: 120MG EOW WEEK 0, 80MG WEEK 2,THERAFTER 40MG EOW
     Dates: start: 20110128, end: 20110412
  5. HUMIRA [Suspect]
     Dosage: 40MG OPW
     Dates: start: 20110101
  6. 5-ASA/SULFASALAZIN [Concomitant]
     Indication: PRODUCT USED FOR UNKNOWN INDICATION
  7. AZATHIOPRIN/6-MP [Concomitant]
     Indication: PRODUCT USED FOR UNKNOWN INDICATION
     Dosage: 1MG PER KG BODY WEIGHT
  8. PANTOPRAZOLE [Concomitant]
     Indication: PRODUCT USED FOR UNKNOWN INDICATION
     Dates: start: 20110101

REACTIONS (3)
  - GASTROINTESTINAL TUBE INSERTION [None]
  - CROHN'S DISEASE [None]
  - PACKED RED BLOOD CELL TRANSFUSION [None]
